FAERS Safety Report 9276766 (Version 2)
Quarter: 2013Q2

REPORT INFORMATION
  Report Type: Report from Study
  Country: US (occurrence: US)
  Receive Date: 20130507
  Receipt Date: 20130517
  Transmission Date: 20140414
  Serious: Yes (Hospitalization, Other)
  Sender: FDA-Public Use
  Company Number: US-ACTELION-A-US2013-82480

PATIENT
  Age: 51 Year
  Sex: Female

DRUGS (3)
  1. VELETRI [Suspect]
     Indication: PULMONARY ARTERIAL HYPERTENSION
     Dosage: 20.2 NG/KG, PER MIN
     Route: 042
     Dates: start: 20100721
  2. ADCIRCA [Concomitant]
  3. COUMADIN [Concomitant]

REACTIONS (2)
  - Gastrointestinal haemorrhage [Recovering/Resolving]
  - Weight decreased [Unknown]
